FAERS Safety Report 8677119 (Version 3)
Quarter: 2013Q3

REPORT INFORMATION
  Report Type: Report from Study
  Country: JP (occurrence: JP)
  Receive Date: 20120723
  Receipt Date: 20130809
  Transmission Date: 20140515
  Serious: Yes (Other)
  Sender: FDA-Public Use
  Company Number: JP-VERTEX PHARMACEUTICALS INC.-AE-2012-010389

PATIENT
  Age: 59 Year
  Sex: Female

DRUGS (11)
  1. VX-950 (TELAPREVIR) [Suspect]
     Indication: CHRONIC HEPATITIS C
     Dosage: 2250 MG, QD
     Route: 048
     Dates: start: 20120518, end: 20120712
  2. VX-950 (TELAPREVIR) [Suspect]
     Dosage: 1500 MG, QD
     Route: 048
     Dates: start: 20120713, end: 20120810
  3. REBETOL [Suspect]
     Indication: CHRONIC HEPATITIS C
     Dosage: 600 MG, QD
     Route: 048
     Dates: start: 20120518, end: 20120614
  4. REBETOL [Suspect]
     Dosage: 400 MG, QD
     Route: 048
     Dates: start: 20120615, end: 20120628
  5. REBETOL [Suspect]
     Dosage: 200 MG, QD
     Route: 048
     Dates: start: 20120629, end: 20121126
  6. PEGINTRON [Suspect]
     Indication: CHRONIC HEPATITIS C
     Dosage: 1.5 ?G/KG, QW
     Route: 058
     Dates: start: 20120518, end: 20120621
  7. PEGINTRON [Suspect]
     Dosage: 1.4 ?G/KG, QW
     Route: 058
     Dates: start: 20120622, end: 20120705
  8. PEGINTRON [Suspect]
     Dosage: 1.2 ?G/KG, QW
     Route: 058
     Dates: start: 20120706
  9. MICARDIS [Concomitant]
     Dosage: 40 MG, QD
     Route: 048
  10. URSO [Concomitant]
     Dosage: 600 MG, QD
     Route: 048
     Dates: end: 20120613
  11. UREPEARL [Concomitant]
     Dosage: UNK, PRN
     Route: 061
     Dates: start: 20120601

REACTIONS (1)
  - Skin exfoliation [Recovered/Resolved]
